FAERS Safety Report 26216407 (Version 1)
Quarter: 2025Q4

REPORT INFORMATION
  Report Type: Spontaneous
  Country: US (occurrence: US)
  Receive Date: 20251231
  Receipt Date: 20251231
  Transmission Date: 20260118
  Serious: No
  Sender: IPSEN BIOPHARMACEUTICALS, INC.
  Company Number: US-IPSEN Group, Research and Development-2025-31952

PATIENT
  Age: 60 Year
  Sex: Female

DRUGS (1)
  1. IQIRVO [Suspect]
     Active Substance: ELAFIBRANOR
     Indication: Primary biliary cholangitis
     Dosage: 80MG 1 TIME A DAY BY MOUTH
     Route: 048
     Dates: start: 20251121, end: 20251128

REACTIONS (7)
  - Hypoaesthesia oral [Not Recovered/Not Resolved]
  - Hypoaesthesia oral [Not Recovered/Not Resolved]
  - Muscle spasms [Unknown]
  - Gastrooesophageal reflux disease [Unknown]
  - Pruritus [Unknown]
  - Abdominal discomfort [Unknown]
  - Pruritus [Unknown]

NARRATIVE: CASE EVENT DATE: 20251123
